FAERS Safety Report 21637401 (Version 1)
Quarter: 2022Q4

REPORT INFORMATION
  Report Type: Spontaneous
  Country: TH (occurrence: TH)
  Receive Date: 20221124
  Receipt Date: 20221124
  Transmission Date: 20230113
  Serious: Yes (Hospitalization, Other)
  Sender: FDA-Public Use
  Company Number: TH-SUN PHARMACEUTICAL INDUSTRIES LTD-2022R1-364271

PATIENT
  Age: 64 Year
  Sex: Male

DRUGS (4)
  1. ENTACAPONE [Suspect]
     Active Substance: ENTACAPONE
     Indication: Parkinson^s disease
     Dosage: 500 MILLIGRAM, DAILY
     Route: 065
  2. TRIHEXYPHENIDYL [Suspect]
     Active Substance: TRIHEXYPHENIDYL
     Indication: Parkinson^s disease
     Dosage: 2 MILLIGRAM, DAILY
     Route: 065
  3. BENSERAZIDE\LEVODOPA [Suspect]
     Active Substance: BENSERAZIDE\LEVODOPA
     Indication: Parkinson^s disease
     Dosage: 650 MILLIGRAM, DAILY
     Route: 065
  4. PIRIBEDIL [Suspect]
     Active Substance: PIRIBEDIL
     Indication: Parkinson^s disease
     Dosage: 150 MILLIGRAM, DAILY
     Route: 065

REACTIONS (3)
  - Dyskinesia [Recovering/Resolving]
  - Acute kidney injury [Recovering/Resolving]
  - Rhabdomyolysis [Recovering/Resolving]
